FAERS Safety Report 16775357 (Version 1)
Quarter: 2019Q3

REPORT INFORMATION
  Report Type: Spontaneous
  Country: US (occurrence: US)
  Receive Date: 20190905
  Receipt Date: 20190905
  Transmission Date: 20191005
  Serious: Yes (Hospitalization)
  Sender: FDA-Public Use
  Company Number: PHHY2019US201644

PATIENT
  Age: 22 Year
  Sex: Female

DRUGS (1)
  1. BUPROPION. [Suspect]
     Active Substance: BUPROPION
     Indication: PRODUCT USED FOR UNKNOWN INDICATION
     Dosage: 40.5 G, UNK
     Route: 048

REACTIONS (7)
  - Torsade de pointes [Unknown]
  - Hypotension [Unknown]
  - Generalised tonic-clonic seizure [Recovering/Resolving]
  - Ventricular tachycardia [Unknown]
  - Toxicity to various agents [Unknown]
  - Pulseless electrical activity [Unknown]
  - Overdose [Unknown]
